FAERS Safety Report 5025134-2 (Version None)
Quarter: 2006Q2

REPORT INFORMATION
  Report Type: 
  Country: None (occurrence: None)
  Receive Date: 20060607
  Receipt Date: 20060603
  Transmission Date: 20061013
  Serious: Yes (Death)
  Sender: FDA-Public Use
  Company Number: 215747

PATIENT
  Age: 56 Year
  Sex: Female

DRUGS (6)
  1. AVASTIN [Suspect]
     Indication: NON-SMALL CELL LUNG CANCER
     Dosage: 15 MG/KG, INTRAVENOUS
     Route: 042
     Dates: start: 20050602, end: 20050623
  2. PEMETREXED (PEMETREXED) [Suspect]
     Indication: NON-SMALL CELL LUNG CANCER
     Dosage: 500 MG/M2, IV BOLUS
     Route: 040
     Dates: start: 20050602, end: 20050623
  3. OXALIPLATIN (OXALIPLATIN) [Concomitant]
  4. MVI (MULTIVITAMINS NOS) [Concomitant]
  5. COMPAZINE [Concomitant]
  6. ZOFRAN [Concomitant]

REACTIONS (1)
  - HAEMOPTYSIS [None]
